FAERS Safety Report 25731543 (Version 2)
Quarter: 2025Q4

REPORT INFORMATION
  Report Type: Spontaneous
  Country: CA (occurrence: CA)
  Receive Date: 20250827
  Receipt Date: 20251204
  Transmission Date: 20260117
  Serious: Yes (Other)
  Sender: PFIZER
  Company Number: CA-PFIZER INC-202500166160

PATIENT
  Age: 32 Year
  Sex: Female
  Weight: 87 kg

DRUGS (5)
  1. IXIFI [Suspect]
     Active Substance: INFLIXIMAB-QBTX
     Indication: Crohn^s disease
     Dosage: 10 MG/KG, EVERY 6 WEEKS
     Route: 042
     Dates: start: 20250612
  2. IXIFI [Suspect]
     Active Substance: INFLIXIMAB-QBTX
     Dosage: 840 MG, AFTER 10 WEEKS (10 MG/KG, EVERY 6 WEEKS)
     Route: 042
     Dates: start: 20250821
  3. IXIFI [Suspect]
     Active Substance: INFLIXIMAB-QBTX
     Dosage: 840 MG, AFTER 10 WEEKS (10 MG/KG, EVERY 6 WEEKS)
     Route: 042
     Dates: start: 20251002
  4. IXIFI [Suspect]
     Active Substance: INFLIXIMAB-QBTX
     Dosage: 810 MG 7 WEEKS AND 6 DAYS (10 MG/KG, EVERY 6 WEEKS)
     Route: 042
     Dates: start: 20251126
  5. PREDNISONE [Concomitant]
     Active Substance: PREDNISONE
     Dosage: UNK

REACTIONS (3)
  - Cardiac murmur [Unknown]
  - Poor venous access [Recovered/Resolved]
  - Off label use [Unknown]

NARRATIVE: CASE EVENT DATE: 20250612
